FAERS Safety Report 5944855-8 (Version None)
Quarter: 2008Q4

REPORT INFORMATION
  Report Type: 
  Country: None (occurrence: None)
  Receive Date: 20081021
  Receipt Date: 20080327
  Transmission Date: 20090506
  Serious: Yes (Other)
  Sender: FDA-Public Use
  Company Number: HQWYE048705AUG04

PATIENT
  Age: 47 Year
  Sex: Female

DRUGS (3)
  1. PREMARIN [Suspect]
     Dosage: ORAL
     Route: 048
     Dates: start: 19910101, end: 20030101
  2. PROGESTERONE [Suspect]
     Dates: start: 19910101, end: 19930101
  3. PROVERA [Suspect]
     Dates: start: 19930101, end: 19970101

REACTIONS (1)
  - BREAST CANCER [None]
